FAERS Safety Report 16332445 (Version 1)
Quarter: 2019Q2

REPORT INFORMATION
  Report Type: Spontaneous
  Country: US (occurrence: US)
  Receive Date: 20190520
  Receipt Date: 20190520
  Transmission Date: 20190711
  Serious: No
  Sender: FDA-Public Use
  Company Number: US-PFIZER INC-2019205901

PATIENT
  Age: 59 Year
  Sex: Male

DRUGS (3)
  1. GENOTROPIN [Suspect]
     Active Substance: SOMATROPIN
     Dosage: 4 MG 5 DAYS/WK
  2. GENOTROPIN [Suspect]
     Active Substance: SOMATROPIN
     Indication: GROWTH HORMONE DEFICIENCY
     Dosage: 0.023 MG/KG, WEEKLY (0.125 MG PER DAY FOR 5/7 DAYS PER WEEK)
     Dates: start: 20011207
  3. GENOTROPIN [Suspect]
     Active Substance: SOMATROPIN
     Dosage: 0.112 MG/KG, WEEKLY (5 MG PER DAY/5 D PER WEEK)

REACTIONS (2)
  - Off label use [Unknown]
  - Acquired growth hormone resistance [Unknown]
